FAERS Safety Report 19315548 (Version 1)
Quarter: 2021Q2

REPORT INFORMATION
  Report Type: Spontaneous
  Country: US (occurrence: US)
  Receive Date: 20210527
  Receipt Date: 20210527
  Transmission Date: 20210717
  Serious: No
  Sender: FDA-Public Use
  Company Number: US-ASTRAZENECA-2021A433749

PATIENT
  Sex: Male
  Weight: 117.9 kg

DRUGS (1)
  1. BREZTRI AEROSPHERE [Suspect]
     Active Substance: BUDESONIDE\FORMOTEROL\GLYCOPYRRONIUM
     Indication: DYSPNOEA
     Dosage: UNKNOWN DOSE; TWICE DAILY
     Route: 055

REACTIONS (1)
  - Candida infection [Not Recovered/Not Resolved]
